FAERS Safety Report 9452665 (Version 8)
Quarter: 2014Q2

REPORT INFORMATION
  Report Type: Spontaneous
  Country: US (occurrence: US)
  Receive Date: 20130812
  Receipt Date: 20140416
  Transmission Date: 20141212
  Serious: Yes (Other)
  Sender: FDA-Public Use
  Company Number: US-009507513-1307USA016290

PATIENT
  Age: 44 Year
  Sex: Male
  Weight: 97.52 kg

DRUGS (6)
  1. PEG-INTRON [Suspect]
     Indication: HEPATITIS C
     Dosage: 0.3 ML, Q7DAYS
     Route: 058
     Dates: start: 20130628
  2. REBETOL [Suspect]
     Indication: HEPATITIS C
     Dosage: 800 MG, BID (TWICE A DAY)
     Route: 048
     Dates: start: 20130628
  3. VICTRELIS [Suspect]
     Indication: HEPATITIS C
     Dosage: 2400 MG, TID (THREE TIMES A DAY)
     Route: 048
     Dates: start: 20130726
  4. COUMADIN [Concomitant]
     Indication: THROMBOSIS
     Dosage: UNK
     Dates: start: 201304
  5. AMLODIPINE [Concomitant]
     Dosage: DAILY
  6. TRAZODONE HYDROCHLORIDE [Concomitant]
     Dosage: DAILY

REACTIONS (26)
  - Depression [Unknown]
  - Decreased appetite [Unknown]
  - Feeling cold [Unknown]
  - Anxiety [Unknown]
  - Drug dose omission [Unknown]
  - Weight decreased [Unknown]
  - Pyrexia [Unknown]
  - Pain [Unknown]
  - Hyperhidrosis [Unknown]
  - Diarrhoea [Unknown]
  - Chills [Unknown]
  - Dyspnoea [Unknown]
  - Influenza like illness [Unknown]
  - Hypoaesthesia [Unknown]
  - Chills [Unknown]
  - Headache [Unknown]
  - Irritability [Unknown]
  - Feeling abnormal [Unknown]
  - Asthenia [Unknown]
  - Vomiting [Unknown]
  - Fall [Unknown]
  - Head injury [Unknown]
  - Weight decreased [Unknown]
  - Abdominal distension [Unknown]
  - Drug dose omission [Unknown]
  - Drug dependence [Unknown]
